FAERS Safety Report 9929503 (Version 3)
Quarter: 2014Q2

REPORT INFORMATION
  Report Type: Spontaneous
  Country: US (occurrence: US)
  Receive Date: 20140227
  Receipt Date: 20140403
  Transmission Date: 20141212
  Serious: Yes (Other)
  Sender: FDA-Public Use
  Company Number: US-PFIZER INC-2014055593

PATIENT
  Age: 63 Year
  Sex: Male
  Weight: 81.63 kg

DRUGS (5)
  1. ROBITUSSIN COUGH AND CHEST CONGESTION DM MAX [Suspect]
     Indication: RESPIRATORY TRACT CONGESTION
     Dosage: UNK, AS NEEDED
  2. ROBITUSSIN COUGH AND CHEST CONGESTION DM [Suspect]
     Indication: RESPIRATORY TRACT CONGESTION
     Dosage: UNK, AS NEEDED
  3. ROBITUSSIN PEAK COLD MAXIMUM STRENGTH MULTI-SYMPTOM COLD [Suspect]
     Dosage: UNK, AS NEEDED
  4. ROBITUSSIN PEAK COLD MULTI-SYMPTOM COLD [Suspect]
     Dosage: UNK, AS NEEDED
  5. INSULIN [Concomitant]
     Indication: DIABETES MELLITUS
     Dosage: UNK

REACTIONS (1)
  - Respiratory failure [Unknown]
